FAERS Safety Report 8133531-1 (Version None)
Quarter: 2012Q1

REPORT INFORMATION
  Report Type: 
  Country: None (occurrence: None)
  Receive Date: 20120213
  Receipt Date: 20120208
  Transmission Date: 20120608
  Serious: Yes (Other)
  Sender: FDA-Public Use
  Company Number: JP-PFIZER INC-2012003814

PATIENT
  Age: 71 Year
  Sex: Male

DRUGS (5)
  1. TIAPRIDE HYDROCHLORIDE [Concomitant]
     Dosage: 1 G, 1X/DAY
     Route: 048
  2. SENNOSIDE [Concomitant]
     Dosage: UNK
  3. AZULFIDINE [Suspect]
     Indication: RHEUMATOID ARTHRITIS
     Dosage: 1 G, 1X/DAY
     Route: 048
     Dates: start: 20111102
  4. LEVOTOMIN [Concomitant]
     Dosage: 0.1 G, 1X/DAY
     Route: 048
  5. HALOPERIDOL [Concomitant]
     Dosage: 0.1 G, 1X/DAY
     Route: 048

REACTIONS (1)
  - HYPERGLYCAEMIA [None]
